FAERS Safety Report 25361542 (Version 1)
Quarter: 2025Q2

REPORT INFORMATION
  Report Type: Spontaneous
  Country: PK (occurrence: PK)
  Receive Date: 20250527
  Receipt Date: 20250527
  Transmission Date: 20250717
  Serious: Yes (Hospitalization, Other)
  Sender: LEGACY PHARMACEUTICAL PACKAGING
  Company Number: PK-LEGACY PHARMA INC. SEZC-LGP202505-000162

PATIENT
  Age: 24 Year
  Sex: Male

DRUGS (1)
  1. ATROPINE SULFATE\DIFENOXIN HYDROCHLORIDE [Suspect]
     Active Substance: ATROPINE SULFATE\DIFENOXIN HYDROCHLORIDE
     Indication: Chemical poisoning
     Dosage: 2 MILLIMETRE, QH, 14 DOSES

REACTIONS (4)
  - Substance-induced psychotic disorder [Recovered/Resolved]
  - Agitation [Recovered/Resolved]
  - Nervousness [Recovered/Resolved]
  - Product use in unapproved indication [Unknown]
